FAERS Safety Report 16750013 (Version 1)
Quarter: 2019Q3

REPORT INFORMATION
  Report Type: Spontaneous
  Country: US (occurrence: US)
  Receive Date: 20190828
  Receipt Date: 20190828
  Transmission Date: 20191005
  Serious: Yes (Other)
  Sender: FDA-Public Use
  Company Number: US-AMGEN-USASP2019135716

PATIENT
  Age: 57 Year
  Sex: Female

DRUGS (1)
  1. PROLIA [Suspect]
     Active Substance: DENOSUMAB
     Indication: OSTEOPOROSIS POSTMENOPAUSAL
     Dosage: 60 MILLIGRAM, Q6MO
     Route: 065

REACTIONS (8)
  - Hypoaesthesia [Unknown]
  - Fatigue [Unknown]
  - Blood parathyroid hormone increased [Unknown]
  - Feeling of body temperature change [Unknown]
  - Dysphonia [Unknown]
  - Arthralgia [Unknown]
  - Paraesthesia [Unknown]
  - Lung infection [Unknown]
